FAERS Safety Report 5702116-6 (Version None)
Quarter: 2008Q2

REPORT INFORMATION
  Report Type: 
  Country: None (occurrence: None)
  Receive Date: 20080411
  Receipt Date: 20070926
  Transmission Date: 20081010
  Serious: No
  Sender: FDA-Public Use
  Company Number: US-ABBOTT-07P-163-0418674-00

PATIENT
  Sex: Male
  Weight: 106 kg

DRUGS (3)
  1. DEPAKOTE [Suspect]
     Indication: BIPOLAR DISORDER
     Route: 048
     Dates: start: 19960101
  2. OXYBUTYNIN CHLORIDE [Concomitant]
     Indication: PROPHYLAXIS
     Route: 048
  3. OXYBUTYNIN CHLORIDE [Concomitant]
     Indication: POLLAKIURIA

REACTIONS (1)
  - WEIGHT INCREASED [None]
